FAERS Safety Report 11366826 (Version 1)
Quarter: 2015Q3

REPORT INFORMATION
  Report Type: Spontaneous
  Country: US (occurrence: US)
  Receive Date: 20150811
  Receipt Date: 20150811
  Transmission Date: 20151125
  Serious: No
  Sender: FDA-Public Use
  Company Number: US-ELI_LILLY_AND_COMPANY-US201107007281

PATIENT
  Age: 63 Year
  Sex: Male

DRUGS (6)
  1. ALLOPURINOL. [Concomitant]
     Active Substance: ALLOPURINOL
     Dosage: 300 MG, QD
  2. LISINOPRIL AND HYDROCHLOROTHIAZIDE [Concomitant]
     Active Substance: HYDROCHLOROTHIAZIDE\LISINOPRIL
     Dosage: 20/12.5, QD
  3. TESTOSTERONE ENANTHATE. [Concomitant]
     Active Substance: TESTOSTERONE ENANTHATE
     Dosage: 200 MG/ML, UNKNOWN
  4. AXIRON [Suspect]
     Active Substance: TESTOSTERONE
     Dosage: 60 MG, UNKNOWN
     Dates: start: 20110621, end: 20110719
  5. WARFARIN [Concomitant]
     Active Substance: WARFARIN
     Dosage: 7 MG - 8 MG, UNKNOWN
  6. LOVASTATIN. [Concomitant]
     Active Substance: LOVASTATIN
     Dosage: 20 MG, QD

REACTIONS (4)
  - Rash pruritic [Recovering/Resolving]
  - Rash erythematous [Recovering/Resolving]
  - Dry skin [Recovering/Resolving]
  - Rash [Recovering/Resolving]
